FAERS Safety Report 19380740 (Version 1)
Quarter: 2021Q2

REPORT INFORMATION
  Report Type: Spontaneous
  Country: US (occurrence: US)
  Receive Date: 20210607
  Receipt Date: 20210607
  Transmission Date: 20210717
  Serious: No
  Sender: FDA-Public Use
  Company Number: US-BTGSP-US-BTGSP-21-0032

PATIENT

DRUGS (4)
  1. METHOTREXATE. [Concomitant]
     Active Substance: METHOTREXATE
     Indication: PRODUCT USED FOR UNKNOWN INDICATION
     Dosage: UNK
     Route: 065
  2. LEUCOVORIN                         /00566701/ [Concomitant]
     Active Substance: LEUCOVORIN
     Indication: DRUG LEVEL INCREASED
     Dosage: UNK
     Route: 065
  3. VORAXAZE [Suspect]
     Active Substance: GLUCARPIDASE
     Indication: DRUG LEVEL INCREASED
     Dosage: 3 VIALS
     Route: 065
     Dates: start: 20210208
  4. VORAXAZE [Suspect]
     Active Substance: GLUCARPIDASE
     Dosage: 2 VIALS
     Route: 065
     Dates: start: 20210211

REACTIONS (3)
  - Rebound effect [Recovered/Resolved]
  - Product availability issue [Unknown]
  - Off label use [Recovered/Resolved]
